FAERS Safety Report 19634934 (Version 2)
Quarter: 2021Q3

REPORT INFORMATION
  Report Type: Spontaneous
  Country: CN (occurrence: CN)
  Receive Date: 20210729
  Receipt Date: 20210812
  Transmission Date: 20211014
  Serious: Yes (Other)
  Sender: FDA-Public Use
  Company Number: CN-SA-2021SA246912

PATIENT
  Sex: Female

DRUGS (7)
  1. ASPIRINE [Concomitant]
     Active Substance: ASPIRIN
     Route: 065
  2. ROXITHROMYCINE [Concomitant]
     Active Substance: ROXITHROMYCIN
     Route: 065
  3. NIFEDIPINE. [Concomitant]
     Active Substance: NIFEDIPINE
     Route: 065
  4. BETALOC [METOPROLOL TARTRATE] [Concomitant]
     Active Substance: METOPROLOL TARTRATE
     Dosage: 0.5 TABLET
     Route: 065
  5. OXCARBAZEPINE. [Concomitant]
     Active Substance: OXCARBAZEPINE
     Route: 065
  6. NAO XIN QING PIAN [Concomitant]
     Route: 065
  7. PLAVIX [Suspect]
     Active Substance: CLOPIDOGREL BISULFATE
     Indication: CEREBRAL INFARCTION
     Dosage: 1 DF, QD
     Route: 048
     Dates: start: 2020

REACTIONS (7)
  - Wrong technique in product usage process [Unknown]
  - Urinary retention [Unknown]
  - Pollakiuria [Unknown]
  - Condition aggravated [Unknown]
  - General physical condition abnormal [Unknown]
  - Dysuria [Unknown]
  - Urinary tract infection [Unknown]
